FAERS Safety Report 24560812 (Version 1)
Quarter: 2024Q4

REPORT INFORMATION
  Report Type: Spontaneous
  Country: US (occurrence: None)
  Receive Date: 20241028
  Receipt Date: 20241028
  Transmission Date: 20250115
  Serious: No
  Sender: Public
  Company Number: None

PATIENT
  Age: 41 Year
  Sex: Female
  Weight: 80 kg

DRUGS (2)
  1. IOHEXOL [Suspect]
     Active Substance: IOHEXOL
     Indication: Pain
     Dosage: OTHER FREQUENCY : ONCE;?
     Route: 042
     Dates: start: 20240731, end: 20240731
  2. UNSPECIFIED INGREDIENT [Suspect]
     Active Substance: UNSPECIFIED INGREDIENT

REACTIONS (2)
  - Musculoskeletal pain [None]
  - Muscular weakness [None]

NARRATIVE: CASE EVENT DATE: 20240731
